FAERS Safety Report 7951960-3 (Version None)
Quarter: 2011Q4

REPORT INFORMATION
  Report Type: 
  Country: None (occurrence: None)
  Receive Date: 20111201
  Receipt Date: 20111125
  Transmission Date: 20120403
  Serious: Yes (Other)
  Sender: FDA-Public Use
  Company Number: JP-PFIZER INC-2011287895

PATIENT
  Sex: Male

DRUGS (1)
  1. XALATAN [Suspect]
     Dosage: UNK DOSE IN BOTH EYES IN THE AM
     Route: 047

REACTIONS (2)
  - LENTICULAR OPACITIES [None]
  - VISUAL ACUITY REDUCED [None]
